FAERS Safety Report 6812609-6 (Version None)
Quarter: 2010Q3

REPORT INFORMATION
  Report Type: 
  Country: None (occurrence: None)
  Receive Date: 20100701
  Receipt Date: 20100623
  Transmission Date: 20110219
  Serious: Yes (Hospitalization)
  Sender: FDA-Public Use
  Company Number: CH-PFIZER INC-2010078237

PATIENT
  Age: 69 Year
  Sex: Female

DRUGS (3)
  1. ZOLOFT [Suspect]
     Indication: DEPRESSION
     Dosage: 50 MG, 1X/DAY
     Route: 048
     Dates: start: 20100506
  2. TRAMAL [Suspect]
     Indication: CONVALESCENT
     Dosage: 50 MG, 4X/DAY
     Route: 048
     Dates: start: 20100601, end: 20100614
  3. SEROQUEL [Concomitant]
     Dosage: UNK
     Route: 048

REACTIONS (2)
  - MUSCLE CONTRACTIONS INVOLUNTARY [None]
  - SEROTONIN SYNDROME [None]
